FAERS Safety Report 23107492 (Version 1)
Quarter: 2023Q4

REPORT INFORMATION
  Report Type: Other
  Country: SK (occurrence: SK)
  Receive Date: 20231026
  Receipt Date: 20231026
  Transmission Date: 20240109
  Serious: Yes (Hospitalization, Other)
  Sender: FDA-Public Use
  Company Number: SK-PFIZER INC-PV202300168930

PATIENT
  Age: 3 Year
  Sex: Female

DRUGS (2)
  1. RITUXIMAB [Suspect]
     Active Substance: RITUXIMAB
     Indication: Cytopenia
     Dosage: 375 MG/M2
     Route: 042
  2. SOLU-MEDROL [Suspect]
     Active Substance: METHYLPREDNISOLONE SODIUM SUCCINATE
     Indication: Cytopenia
     Dosage: 5-10 MG/KG
     Route: 065

REACTIONS (5)
  - Hypertension [Unknown]
  - Ear infection [Unknown]
  - Respiratory tract infection [Unknown]
  - Cushingoid [Unknown]
  - Therapeutic product effect incomplete [Unknown]
